FAERS Safety Report 19020382 (Version 2)
Quarter: 2021Q1

REPORT INFORMATION
  Report Type: Other
  Country: BE (occurrence: BE)
  Receive Date: 20210317
  Receipt Date: 20210322
  Transmission Date: 20210420
  Serious: Yes (Hospitalization, Other)
  Sender: FDA-Public Use
  Company Number: BE-ROCHE-2738269

PATIENT
  Age: 58 Year
  Sex: Female
  Weight: 75 kg

DRUGS (43)
  1. ATEZOLIZUMAB. [Suspect]
     Active Substance: ATEZOLIZUMAB
     Route: 042
     Dates: start: 20201123
  2. KALIUM GLUCONATE [Concomitant]
     Dates: start: 20210120
  3. CEFAZOLINE [Concomitant]
     Active Substance: CEFAZOLIN SODIUM
     Dates: start: 20200723, end: 20200723
  4. INFLUENZA [Concomitant]
     Active Substance: INFLUENZA VIRUS VACCINE
     Dates: start: 20201123, end: 20201123
  5. FYTOMENADION [Concomitant]
     Active Substance: PHYTONADIONE
     Dates: start: 20210124, end: 20210124
  6. ERYTHROMYCINE [Concomitant]
     Active Substance: ERYTHROMYCIN
     Indication: PROPHYLAXIS
     Dates: start: 20210125
  7. ATEZOLIZUMAB. [Suspect]
     Active Substance: ATEZOLIZUMAB
     Route: 042
     Dates: start: 20200810
  8. ATEZOLIZUMAB. [Suspect]
     Active Substance: ATEZOLIZUMAB
     Route: 042
     Dates: start: 20200921
  9. ATEZOLIZUMAB. [Suspect]
     Active Substance: ATEZOLIZUMAB
     Route: 042
     Dates: start: 20201012
  10. PROGESTERONE. [Concomitant]
     Active Substance: PROGESTERONE
     Dates: start: 20201214, end: 20210124
  11. MORFINE [Concomitant]
     Active Substance: MORPHINE
     Indication: NEOPLASM PROGRESSION
     Dates: start: 20210124
  12. PANTOPRAZOL [Concomitant]
     Active Substance: PANTOPRAZOLE SODIUM
     Indication: PROPHYLAXIS
     Dosage: NEXT DOSE ON: 24/JAN/2021
     Dates: start: 20200717, end: 20210123
  13. LORAZEPAM. [Concomitant]
     Active Substance: LORAZEPAM
     Dates: start: 20200805
  14. FUROSEMIDE. [Concomitant]
     Active Substance: FUROSEMIDE
     Indication: PROPHYLAXIS
     Dates: start: 20200720, end: 20200723
  15. PARACETAMOL [Concomitant]
     Active Substance: ACETAMINOPHEN
     Dates: start: 20210125
  16. ETHYLMORPHINE [Concomitant]
     Active Substance: ETHYLMORPHINE
     Dates: start: 20200805
  17. ATEZOLIZUMAB. [Suspect]
     Active Substance: ATEZOLIZUMAB
     Route: 042
     Dates: start: 20200720
  18. ATEZOLIZUMAB. [Suspect]
     Active Substance: ATEZOLIZUMAB
     Route: 042
     Dates: start: 20201102
  19. LIPEGFILGRASTIM [Concomitant]
     Active Substance: LIPEGFILGRASTIM
     Dates: start: 20201223, end: 20210113
  20. FUROSEMIDE. [Concomitant]
     Active Substance: FUROSEMIDE
     Dates: start: 20210124, end: 20210124
  21. KALIUM GLUCONATE [Concomitant]
     Dates: start: 20200724, end: 20200727
  22. MIDAZOLAM. [Concomitant]
     Active Substance: MIDAZOLAM
     Indication: NEOPLASM PROGRESSION
     Dates: start: 20210125
  23. ETOPOSIDE. [Suspect]
     Active Substance: ETOPOSIDE
     Indication: SMALL CELL LUNG CANCER EXTENSIVE STAGE
     Route: 065
     Dates: start: 20200720
  24. LIPEGFILGRASTIM [Concomitant]
     Active Substance: LIPEGFILGRASTIM
     Dates: start: 20200723, end: 20201105
  25. ESTRADIOL. [Concomitant]
     Active Substance: ESTRADIOL
     Dates: start: 20201214, end: 20210124
  26. CARBOPLATIN. [Suspect]
     Active Substance: CARBOPLATIN
     Indication: SMALL CELL LUNG CANCER EXTENSIVE STAGE
     Route: 065
     Dates: start: 20200720
  27. PANTOPRAZOL [Concomitant]
     Active Substance: PANTOPRAZOLE SODIUM
     Dates: start: 20201214, end: 20210124
  28. ALLOPURINOL. [Concomitant]
     Active Substance: ALLOPURINOL
     Indication: PROPHYLAXIS
     Dates: start: 20200717
  29. MAGNESIUM GLUCONATE [Concomitant]
     Active Substance: MAGNESIUM GLUCONATE
     Dates: start: 20200721, end: 20201113
  30. PARACETAMOL [Concomitant]
     Active Substance: ACETAMINOPHEN
     Indication: NEOPLASM PROGRESSION
     Dates: start: 20200911, end: 20201005
  31. CHLORHEXIDINE [Concomitant]
     Active Substance: CHLORHEXIDINE
     Dates: start: 20201023
  32. SODIUM BICARBONATE. [Concomitant]
     Active Substance: SODIUM BICARBONATE
     Indication: NEOPLASM PROGRESSION
     Dates: start: 20210124
  33. LIDOCAINE. [Concomitant]
     Active Substance: LIDOCAINE
     Dates: start: 20210113, end: 20210113
  34. ATEZOLIZUMAB. [Suspect]
     Active Substance: ATEZOLIZUMAB
     Route: 042
     Dates: start: 20201214
  35. PANTOPRAZOL [Concomitant]
     Active Substance: PANTOPRAZOLE SODIUM
     Dates: start: 20210124
  36. KALIUMCHLORIDE [Concomitant]
     Dates: start: 20200724, end: 20200728
  37. KALIUMCHLORIDE [Concomitant]
     Dates: start: 20210120, end: 20210120
  38. STEOVIT D3 [Concomitant]
     Active Substance: CALCIUM CARBONATE\CHOLECALCIFEROL
     Dates: start: 20200928
  39. TOPOTECAN [Concomitant]
     Active Substance: TOPOTECAN HYDROCHLORIDE
     Dates: start: 20201218, end: 20210112
  40. ATEZOLIZUMAB. [Suspect]
     Active Substance: ATEZOLIZUMAB
     Indication: SMALL CELL LUNG CANCER EXTENSIVE STAGE
     Dosage: DOSE OF LAST STUDY DRUG ADMINISTERED PRIOR TO AE/SAE: 1200 MG?DATE OF MOST RECENT DOSE DOSE OF DRUG
     Route: 042
     Dates: start: 20200720
  41. CARBOCISTEINE [Concomitant]
     Active Substance: CARBOCYSTEINE
     Dates: start: 20200731, end: 20200803
  42. METHYLPREDNISOLON [Concomitant]
     Active Substance: METHYLPREDNISOLONE
     Dates: start: 20200721, end: 20201105
  43. ALIZAPRIDE [Concomitant]
     Active Substance: ALIZAPRIDE
     Dates: start: 20200902, end: 20200902

REACTIONS (10)
  - Anaemia [Recovering/Resolving]
  - Ascites [Not Recovered/Not Resolved]
  - Diarrhoea [Recovered/Resolved]
  - Pruritus [Recovering/Resolving]
  - Thrombocytopenia [Recovered/Resolved]
  - Onychoclasis [Recovering/Resolving]
  - Epistaxis [Recovered/Resolved]
  - Hypothyroidism [Recovering/Resolving]
  - Abdominal pain [Recovering/Resolving]
  - Hypokalaemia [Recovered/Resolved]

NARRATIVE: CASE EVENT DATE: 20201207
